FAERS Safety Report 6366451-3 (Version None)
Quarter: 2009Q3

REPORT INFORMATION
  Report Type: 
  Country: None (occurrence: None)
  Receive Date: 20090921
  Receipt Date: 20090910
  Transmission Date: 20100115
  Serious: Yes (Other)
  Sender: FDA-Public Use
  Company Number: AE-ROCHE-656614

PATIENT
  Age: 26 Year
  Sex: Female
  Weight: 83 kg

DRUGS (1)
  1. XENICAL [Suspect]
     Indication: WEIGHT CONTROL
     Dosage: FREQUENCY REPORTED AS: 2.
     Route: 048
     Dates: start: 20090824

REACTIONS (1)
  - IRRITABLE BOWEL SYNDROME [None]
